FAERS Safety Report 10229882 (Version 1)
Quarter: 2014Q2

REPORT INFORMATION
  Report Type: Spontaneous
  Country: US (occurrence: None)
  Receive Date: 20140609
  Receipt Date: 20140609
  Transmission Date: 20141212
  Serious: Yes (Life-Threatening, Hospitalization, Other)
  Sender: FDA-Public Use
  Company Number: FK201402193

PATIENT
  Age: 66 Year
  Sex: Female

DRUGS (13)
  1. CYANOCOBALAMIN INJECTION, USP (CYANOCOBALAMIN) (CYANOCOBALAMIN) [Suspect]
     Indication: VITAMIN B12 DECREASED
     Dates: start: 2012, end: 20140528
  2. ADVIL PM (ADVIL PM /05810501/) [Concomitant]
  3. ECHINACEA (ECHINACEA PURPUREA) [Concomitant]
  4. PROTONIX (PANTOPRAZOLE SODIUM SESQUIHYDRATE) [Concomitant]
  5. RITUXAN (RITUXIMAB) [Concomitant]
  6. NAPROXEN (NAPROXEN) [Concomitant]
  7. METFORMIN (METFORMIN) [Concomitant]
  8. SYNTHYROID (LEVOTHYROXINE SODIUM) [Concomitant]
  9. VITAMIN D (ERGOCALCIFEROL) [Concomitant]
  10. VITAMIN E (TOCOPHEROL) [Concomitant]
  11. VITAMIN B COMPLEX (VITAMIN B COMPLEX) [Concomitant]
  12. FLAXSEED OIL (LINUM USITATISSIMUM SEED OIL) [Concomitant]
  13. CALCIUM PILL WITH VITAMIN D (CALDECIUM /01817601/) [Concomitant]

REACTIONS (1)
  - Drug hypersensitivity [None]
